FAERS Safety Report 23945898 (Version 1)
Quarter: 2024Q2

REPORT INFORMATION
  Report Type: Spontaneous
  Country: US (occurrence: US)
  Receive Date: 20240606
  Receipt Date: 20240606
  Transmission Date: 20240716
  Serious: No
  Sender: FDA-Public Use
  Company Number: US-B.Braun Medical Inc.-2157846

PATIENT
  Age: 53 Year
  Sex: Female
  Weight: 50 kg

DRUGS (3)
  1. SODIUM CHLORIDE [Suspect]
     Active Substance: SODIUM CHLORIDE
  2. VITAMINS [Concomitant]
     Active Substance: VITAMINS
  3. Liquivida [Concomitant]

REACTIONS (3)
  - Chest pain [Unknown]
  - Malaise [Unknown]
  - Tremor [Unknown]
